FAERS Safety Report 19180235 (Version 1)
Quarter: 2021Q2

REPORT INFORMATION
  Report Type: Spontaneous
  Country: CN (occurrence: CN)
  Receive Date: 20210426
  Receipt Date: 20210426
  Transmission Date: 20210717
  Serious: Yes (Life-Threatening, Hospitalization, Other)
  Sender: FDA-Public Use
  Company Number: CN-PFIZER INC-2021426511

PATIENT
  Age: 6 Year
  Sex: Male

DRUGS (1)
  1. METHOTREXATE. [Suspect]
     Active Substance: METHOTREXATE
     Indication: CROHN^S DISEASE
     Dosage: 12.000 MG, 1X/DAY
     Route: 041
     Dates: start: 20210309, end: 20210309

REACTIONS (8)
  - Panic reaction [Recovering/Resolving]
  - Blood pressure decreased [Recovering/Resolving]
  - Irritability [Recovering/Resolving]
  - White blood cell count decreased [Recovering/Resolving]
  - Neutrophil count decreased [Recovering/Resolving]
  - Infection [Recovering/Resolving]
  - Hyperpyrexia [Recovering/Resolving]
  - Off label use [Unknown]

NARRATIVE: CASE EVENT DATE: 20210309
